FAERS Safety Report 5348554-5 (Version None)
Quarter: 2007Q2

REPORT INFORMATION
  Report Type: 
  Country: None (occurrence: None)
  Receive Date: 20070606
  Receipt Date: 20070530
  Transmission Date: 20071010
  Serious: Yes (Other)
  Sender: FDA-Public Use
  Company Number: JP-PFIZER INC-2007044102

PATIENT
  Age: 30 Year
  Sex: Female

DRUGS (2)
  1. ATARAX [Suspect]
  2. ALL OTHER THERAPEUTIC PRODUCTS [Concomitant]

REACTIONS (2)
  - LETHARGY [None]
  - SUICIDE ATTEMPT [None]
